FAERS Safety Report 7342181-6 (Version None)
Quarter: 2011Q1

REPORT INFORMATION
  Report Type: 
  Country: None (occurrence: None)
  Receive Date: 20110309
  Receipt Date: 20110301
  Transmission Date: 20110831
  Serious: Yes (Hospitalization)
  Sender: FDA-Public Use
  Company Number: US-ASTRAZENECA-2011SE11687

PATIENT
  Sex: Female

DRUGS (1)
  1. SYMBICORT [Suspect]
     Indication: ASTHMA
     Dosage: 160/4.5 UG TWO PUFFS TWICE A DAY
     Route: 048

REACTIONS (3)
  - RESPIRATORY FAILURE [None]
  - DRUG DOSE OMISSION [None]
  - MALAISE [None]
